FAERS Safety Report 18652366 (Version 1)
Quarter: 2020Q4

REPORT INFORMATION
  Report Type: Spontaneous
  Country: DK (occurrence: DK)
  Receive Date: 20201223
  Receipt Date: 20201223
  Transmission Date: 20210114
  Serious: Yes (Hospitalization)
  Sender: FDA-Public Use
  Company Number: DK-TEVA-2020-DK-1860133

PATIENT
  Age: 97 Year
  Sex: Female

DRUGS (4)
  1. OXABENZ [Suspect]
     Active Substance: OXAZEPAM
     Indication: FEELING OF RELAXATION
     Dosage: DOSE: 22.5 MG
     Route: 048
     Dates: start: 20201102, end: 20201125
  2. PANODIL [Concomitant]
     Active Substance: ACETAMINOPHEN
     Indication: PAIN
     Dosage: DOSAGE: 2 TABLETS AS NEEDED - MAX 4 TIMES A DAY.
     Route: 048
     Dates: start: 20140929
  3. LEVOCETIRIZIN ^STADA^ [Concomitant]
     Indication: SEASONAL ALLERGY
     Dosage: ; DOSE: 5 MG
     Route: 048
     Dates: start: 20201102, end: 20201125
  4. NITROGLYCERIN ^DAK^ [Concomitant]
     Indication: ANGINA PECTORIS
     Dosage: DOSAGE: 1 TABLET AS NEEDED - MAX 1 TIME A DAY.
     Route: 060
     Dates: start: 20190219

REACTIONS (2)
  - Confusional state [Recovering/Resolving]
  - Dizziness [Recovering/Resolving]

NARRATIVE: CASE EVENT DATE: 202011
